FAERS Safety Report 19139649 (Version 1)
Quarter: 2021Q2

REPORT INFORMATION
  Report Type: Spontaneous
  Country: IN (occurrence: IN)
  Receive Date: 20210415
  Receipt Date: 20210415
  Transmission Date: 20210717
  Serious: Yes (Life-Threatening, Hospitalization)
  Sender: FDA-Public Use
  Company Number: IN-MYLANLABS-2021M1022469

PATIENT
  Age: 21 Year
  Sex: Female
  Weight: 65 kg

DRUGS (5)
  1. BUPIVACAINE. [Suspect]
     Active Substance: BUPIVACAINE
     Indication: SPINAL ANAESTHESIA
     Dosage: 1.8 MILLILITER
  2. CARBOPROST [Suspect]
     Active Substance: CARBOPROST
     Indication: POSTPARTUM HAEMORRHAGE
     Dosage: INTRAMYOMETRIAL
  3. OXYTOCIN. [Concomitant]
     Active Substance: OXYTOCIN
     Indication: PRODUCT USED FOR UNKNOWN INDICATION
     Dosage: 15 INTERNATIONAL UNIT
     Route: 042
  4. CARBOPROST [Suspect]
     Active Substance: CARBOPROST
     Indication: UTERINE ATONY
  5. METHYLERGOMETRINE [Concomitant]
     Active Substance: METHYLERGONOVINE MALEATE
     Indication: UTERINE ATONY
     Dosage: 0.2 MILLIGRAM, SLOWLY
     Route: 042

REACTIONS (4)
  - Generalised tonic-clonic seizure [Recovered/Resolved]
  - Product use issue [Recovered/Resolved]
  - Blood pressure increased [Recovered/Resolved]
  - Maternal exposure during delivery [Recovered/Resolved]
